FAERS Safety Report 13846172 (Version 1)
Quarter: 2017Q3

REPORT INFORMATION
  Report Type: Spontaneous
  Country: US (occurrence: US)
  Receive Date: 20170808
  Receipt Date: 20170808
  Transmission Date: 20171127
  Serious: No
  Sender: FDA-Public Use
  Company Number: US-ROCHE-798781

PATIENT
  Sex: Female
  Weight: 57.3 kg

DRUGS (1)
  1. BONIVA [Suspect]
     Active Substance: IBANDRONATE SODIUM
     Indication: OSTEOPENIA
     Route: 042

REACTIONS (4)
  - Asthenia [Unknown]
  - Bone pain [Unknown]
  - Gait disturbance [Unknown]
  - Nausea [Unknown]
